FAERS Safety Report 4308084-6 (Version None)
Quarter: 2004Q1

REPORT INFORMATION
  Report Type: 
  Country: None (occurrence: None)
  Receive Date: 20040301
  Receipt Date: 20030430
  Transmission Date: 20041129
  Serious: No
  Sender: FDA-Public Use
  Company Number: US-BRISTOL-MYERS SQUIBB COMPANY-12260899

PATIENT
  Age: 85 Year
  Sex: Female
  Weight: 65 kg

DRUGS (2)
  1. GLUCOPHAGE [Suspect]
     Indication: DIABETES MELLITUS
     Dosage: INCREASED FROM 500 MG DAILY TO 1000 MG DAILY ON 29-APR-2003
     Route: 048
     Dates: start: 20030422
  2. GLUCOTROL [Concomitant]

REACTIONS (1)
  - VOMITING [None]
